FAERS Safety Report 5427457-1 (Version None)
Quarter: 2007Q3

REPORT INFORMATION
  Report Type: 
  Country: None (occurrence: None)
  Receive Date: 20070824
  Receipt Date: 20070824
  Transmission Date: 20080115
  Serious: No
  Sender: FDA-Public Use
  Company Number: None

PATIENT
  Sex: Female

DRUGS (1)
  1. LISINOPRIL [Suspect]
     Indication: HYPERTENSION
     Dosage: ONE TABLET ONCE DAILY PO
     Route: 048
     Dates: start: 20070814, end: 20070823

REACTIONS (1)
  - DRUG DISPENSING ERROR [None]
